FAERS Safety Report 6397194-8 (Version None)
Quarter: 2009Q4

REPORT INFORMATION
  Report Type: 
  Country: None (occurrence: None)
  Receive Date: 20091012
  Receipt Date: 20090928
  Transmission Date: 20100525
  Serious: Yes (Other)
  Sender: FDA-Public Use
  Company Number: US-JNJFOC-20090800324

PATIENT
  Sex: Male
  Weight: 104.33 kg

DRUGS (24)
  1. REMICADE [Suspect]
     Indication: CROHN'S DISEASE
     Dosage: RECEIVED 6 DOSES
     Route: 042
     Dates: start: 20060124, end: 20060501
  2. FENTANYL [Concomitant]
     Dosage: 25 MCG/HR
     Route: 062
  3. REQUIP [Concomitant]
     Route: 048
  4. CYMBALTA [Concomitant]
     Indication: PAIN
  5. ASACOL [Concomitant]
     Route: 048
  6. NULEV [Concomitant]
     Route: 060
  7. IMODIUM [Concomitant]
  8. RELPAX [Concomitant]
     Indication: HEADACHE
  9. PROVIGIL [Concomitant]
  10. CLARINEX [Concomitant]
     Route: 048
  11. BENADRYL [Concomitant]
     Indication: HYPERSENSITIVITY
  12. PROMETHAZINE [Concomitant]
     Route: 048
  13. DIFLUCAN [Concomitant]
     Route: 048
  14. AMPHETAMINE AND DEXTROAMPHETAMINE SALTS [Concomitant]
  15. CLONIDINE [Concomitant]
     Route: 048
  16. MORPHINE SULFATE [Concomitant]
     Indication: PAIN
  17. BACLOFEN [Concomitant]
  18. KADIAN [Concomitant]
  19. PRISTIQ [Concomitant]
     Route: 048
  20. WELLBUTRIN [Concomitant]
  21. ASCORBIC ACID [Concomitant]
  22. VITAMIN B COMPLEX CAP [Concomitant]
  23. ERGOCALCIFEROL [Concomitant]
  24. TESTOSTERONE [Concomitant]

REACTIONS (23)
  - ABDOMINAL DISTENSION [None]
  - ABDOMINAL PAIN [None]
  - AMMONIA INCREASED [None]
  - ANTINUCLEAR ANTIBODY POSITIVE [None]
  - ARTHRALGIA [None]
  - ATELECTASIS [None]
  - BACK PAIN [None]
  - BLOOD SODIUM INCREASED [None]
  - BLOOD TESTOSTERONE DECREASED [None]
  - COUGH [None]
  - DEMYELINATION [None]
  - DIZZINESS [None]
  - DRY SKIN [None]
  - DYSPEPSIA [None]
  - DYSPNOEA [None]
  - HEADACHE [None]
  - JOINT SWELLING [None]
  - MUSCULOSKELETAL PAIN [None]
  - MYOPATHY [None]
  - NECK PAIN [None]
  - SEASONAL ALLERGY [None]
  - SYNOVIAL CYST [None]
  - TESTICULAR PAIN [None]
